FAERS Safety Report 20140756 (Version 1)
Quarter: 2021Q4

REPORT INFORMATION
  Report Type: Spontaneous
  Country: IN (occurrence: IN)
  Receive Date: 20211202
  Receipt Date: 20211202
  Transmission Date: 20220303
  Serious: Yes (Life-Threatening, Hospitalization)
  Sender: FDA-Public Use
  Company Number: IN-MYLANLABS-2021M1089353

PATIENT
  Age: 60 Day
  Sex: Male
  Weight: 5 kg

DRUGS (9)
  1. AMIODARONE [Suspect]
     Active Substance: AMIODARONE
     Indication: Tachyarrhythmia
     Route: 042
  2. AMIODARONE [Suspect]
     Active Substance: AMIODARONE
     Dosage: 15 MICROGRAM/KILOGRAM, QMINUTE
     Route: 042
  3. MILRINONE [Suspect]
     Active Substance: MILRINONE
     Indication: Tachyarrhythmia
     Dosage: 0.5 MICROGRAM/KILOGRAM, QMINUTE
     Route: 042
  4. FUROSEMIDE [Suspect]
     Active Substance: FUROSEMIDE
     Indication: Tachyarrhythmia
     Dosage: 1 MILLIGRAM/KILOGRAM, QD
     Route: 065
  5. METOPROLOL [Suspect]
     Active Substance: METOPROLOL
     Indication: Tachyarrhythmia
     Dosage: THREE DOSES OF BOLUS INTRAVENOUS METOPROLOL
     Route: 042
  6. METOPROLOL [Suspect]
     Active Substance: METOPROLOL
     Dosage: UNK
     Route: 042
  7. SOTALOL [Suspect]
     Active Substance: SOTALOL
     Indication: Tachyarrhythmia
     Dosage: 1 MILLIGRAM/KILOGRAM
  8. DIGOXIN [Concomitant]
     Active Substance: DIGOXIN
     Indication: Atrial tachycardia
     Route: 042
  9. EPINEPHRINE [Concomitant]
     Active Substance: EPINEPHRINE
     Indication: Atrial tachycardia
     Dosage: 0.4 ML OF 1 IN 10,000 DILUTION FOR SINGLE DOSE
     Route: 065

REACTIONS (1)
  - Drug ineffective [Unknown]
